FAERS Safety Report 16318697 (Version 1)
Quarter: 2019Q2

REPORT INFORMATION
  Report Type: Spontaneous
  Country: US (occurrence: US)
  Receive Date: 20190516
  Receipt Date: 20190516
  Transmission Date: 20190711
  Serious: Yes (Other)
  Sender: FDA-Public Use
  Company Number: US-JNJFOC-20190509903

PATIENT
  Sex: Female

DRUGS (1)
  1. NEUTROGENA SPORT FACE OIL FREE SUNSCREEN BROAD SPECTRUM SPF70 PLUS [Suspect]
     Active Substance: AVOBENZONE\HOMOSALATE\OCTISALATE\OCTOCRYLENE\OXYBENZONE
     Indication: PROPHYLAXIS AGAINST SOLAR RADIATION
     Dosage: FREQUENCY: USED EVERYDAY
     Route: 061
     Dates: start: 2017

REACTIONS (1)
  - Intraductal proliferative breast lesion [Not Recovered/Not Resolved]
